FAERS Safety Report 6721154-8 (Version None)
Quarter: 2010Q2

REPORT INFORMATION
  Report Type: 
  Country: None (occurrence: None)
  Receive Date: 20100512
  Receipt Date: 20100512
  Transmission Date: 20101027
  Serious: Yes (Hospitalization)
  Sender: FDA-Public Use
  Company Number: None

PATIENT
  Age: 2 Year
  Sex: Male
  Weight: 16.7831 kg

DRUGS (1)
  1. CHILDREN'S MOTRIN [Suspect]
     Indication: PYREXIA
     Dosage: 1 1/2 TSP 6-8 HRS PO
     Route: 048
     Dates: start: 20100506, end: 20100506

REACTIONS (5)
  - ERYTHEMA [None]
  - EYE SWELLING [None]
  - PRODUCT QUALITY ISSUE [None]
  - PRURITUS [None]
  - SKIN IRRITATION [None]
